FAERS Safety Report 7933624-5 (Version None)
Quarter: 2011Q4

REPORT INFORMATION
  Report Type: 
  Country: None (occurrence: None)
  Receive Date: 20111122
  Receipt Date: 20100312
  Transmission Date: 20120403
  Serious: Yes (Other)
  Sender: FDA-Public Use
  Company Number: PHHY2010TW15557

PATIENT
  Sex: Female

DRUGS (1)
  1. GLEEVEC [Suspect]
     Indication: GASTROINTESTINAL STROMAL TUMOUR
     Dosage: 400 MG, UNK
     Route: 048

REACTIONS (7)
  - MUSCLE SPASMS [None]
  - AGEUSIA [None]
  - CHEST PAIN [None]
  - OSTEOPOROSIS [None]
  - SENSITIVITY OF TEETH [None]
  - DYSPNOEA EXERTIONAL [None]
  - ALOPECIA [None]
